FAERS Safety Report 15898224 (Version 1)
Quarter: 2019Q1

REPORT INFORMATION
  Report Type: Spontaneous
  Country: CN (occurrence: CN)
  Receive Date: 20190201
  Receipt Date: 20190201
  Transmission Date: 20190417
  Serious: Yes (Life-Threatening, Other)
  Sender: FDA-Public Use
  Company Number: CN-ROCHE-2254956

PATIENT
  Sex: Female

DRUGS (10)
  1. COTRIMOXAZOLE [Concomitant]
     Active Substance: SULFAMETHOXAZOLE\TRIMETHOPRIM
     Indication: LUNG INFECTION
     Dosage: 3 TABLETS, 14/DEC - START DATE
     Route: 065
  2. POSACONAZOLE [Concomitant]
     Active Substance: POSACONAZOLE
     Indication: LUNG INFECTION
  3. ACYCLOVIR. [Concomitant]
     Active Substance: ACYCLOVIR
     Indication: LUNG INFECTION
  4. VFEND [Concomitant]
     Active Substance: VORICONAZOLE
     Indication: LUNG INFECTION
     Dosage: 14/DEC - START DATE
     Route: 065
  5. THROMBOPOIETIN [Concomitant]
     Active Substance: THROMBOPOIETIN
     Indication: TRANSPLANT FAILURE
  6. GANCICLOVIR. [Suspect]
     Active Substance: GANCICLOVIR
     Indication: LUNG INFECTION
     Route: 065
  7. PIPERACILLIN. [Concomitant]
     Active Substance: PIPERACILLIN SODIUM
     Indication: LUNG INFECTION
  8. METHYLPREDNISOLONE. [Concomitant]
     Active Substance: METHYLPREDNISOLONE
     Indication: LUNG INFECTION
     Route: 065
  9. RUXOLITINIB [Concomitant]
     Active Substance: RUXOLITINIB
     Indication: LUNG INFECTION
     Route: 065
  10. MICAFUNGIN. [Concomitant]
     Active Substance: MICAFUNGIN SODIUM
     Indication: LUNG INFECTION
     Dosage: 14/DEC - STOP DATE
     Route: 065

REACTIONS (5)
  - Blood potassium increased [Unknown]
  - Loss of consciousness [Unknown]
  - Cardiac arrest [Unknown]
  - Respiratory arrest [Unknown]
  - Respiratory failure [Unknown]
